FAERS Safety Report 20086931 (Version 1)
Quarter: 2021Q4

REPORT INFORMATION
  Report Type: Spontaneous
  Country: CN (occurrence: CN)
  Receive Date: 20211118
  Receipt Date: 20211118
  Transmission Date: 20220304
  Serious: Yes (Other)
  Sender: FDA-Public Use
  Company Number: CN-PFIZER INC-202101566462

PATIENT
  Age: 17 Year
  Sex: Female
  Weight: 55 kg

DRUGS (4)
  1. METHOTREXATE [Suspect]
     Active Substance: METHOTREXATE
     Indication: Acute lymphocytic leukaemia
     Dosage: 500 MG, 1X/DAY
     Route: 041
     Dates: start: 20211026, end: 20211026
  2. METHOTREXATE [Suspect]
     Active Substance: METHOTREXATE
     Dosage: 4300 MG, 1X/DAY
     Route: 041
     Dates: start: 20211026, end: 20211026
  3. SODIUM CHLORIDE [Concomitant]
     Active Substance: SODIUM CHLORIDE
     Indication: Vehicle solution use
     Dosage: 100 ML
     Dates: start: 20211026, end: 20211026
  4. SODIUM CHLORIDE [Concomitant]
     Active Substance: SODIUM CHLORIDE
     Dosage: 500 ML
     Dates: start: 20211026, end: 20211026

REACTIONS (1)
  - Burning sensation mucosal [Recovering/Resolving]

NARRATIVE: CASE EVENT DATE: 20211027
